FAERS Safety Report 5442473-1 (Version None)
Quarter: 2007Q3

REPORT INFORMATION
  Report Type: 
  Country: None (occurrence: None)
  Receive Date: 20070904
  Receipt Date: 20070823
  Transmission Date: 20080115
  Serious: Yes (Other)
  Sender: FDA-Public Use
  Company Number: ES-PFIZER INC-2007071510

PATIENT
  Age: 48 Year
  Sex: Female

DRUGS (3)
  1. LYRICA [Suspect]
     Indication: PAIN
  2. LYRICA [Suspect]
     Indication: AMYLOIDOSIS
  3. LYRICA [Suspect]
     Indication: ARTHRITIS

REACTIONS (1)
  - DRUG TOXICITY [None]
